FAERS Safety Report 5601356-4 (Version None)
Quarter: 2008Q1

REPORT INFORMATION
  Report Type: 
  Country: None (occurrence: None)
  Receive Date: 20080124
  Receipt Date: 20080117
  Transmission Date: 20080703
  Serious: Yes (Disabling)
  Sender: FDA-Public Use
  Company Number: BR-ASTRAZENECA-2008UW01458

PATIENT
  Age: 70 Year
  Sex: Female
  Weight: 80 kg

DRUGS (8)
  1. ARIMIDEX [Suspect]
     Indication: BREAST CANCER
     Route: 048
     Dates: start: 20050601, end: 20071001
  2. TAMOXIFEN [Concomitant]
     Indication: BREAST CANCER
     Route: 048
     Dates: start: 20011201, end: 20050601
  3. PURAN T4 [Concomitant]
     Route: 048
     Dates: start: 19960101
  4. PROPRANOLOL [Concomitant]
     Indication: ARRHYTHMIA
     Route: 048
     Dates: start: 19940101
  5. CLONAZEPAM [Concomitant]
     Indication: DEPRESSION
     Route: 048
  6. ALDOMET [Concomitant]
     Route: 048
     Dates: start: 20071101
  7. HYGROTON [Concomitant]
     Route: 048
     Dates: start: 20060101
  8. GLUCOVANCE [Concomitant]
     Route: 048
     Dates: start: 20070101

REACTIONS (2)
  - ASTEATOSIS [None]
  - DEAFNESS [None]
